FAERS Safety Report 14340086 (Version 1)
Quarter: 2017Q4

REPORT INFORMATION
  Report Type: Spontaneous
  Country: US (occurrence: US)
  Receive Date: 20171231
  Receipt Date: 20171231
  Transmission Date: 20180321
  Serious: Yes (Other)
  Sender: FDA-Public Use
  Company Number: PHHY2017US196546

PATIENT

DRUGS (1)
  1. DABRAFENIB [Suspect]
     Active Substance: DABRAFENIB
     Indication: MALIGNANT MELANOMA
     Route: 065

REACTIONS (4)
  - Recurrent cancer [Unknown]
  - Metastases to central nervous system [Unknown]
  - Metastases to skin [Unknown]
  - Metastases to muscle [Unknown]
